FAERS Safety Report 5246979-X (Version None)
Quarter: 2007Q1

REPORT INFORMATION
  Report Type: 
  Country: None (occurrence: None)
  Receive Date: 20070226
  Receipt Date: 20070223
  Transmission Date: 20070707
  Serious: No
  Sender: FDA-Public Use
  Company Number: 2007-001705

PATIENT
  Age: 62 Year
  Sex: Male
  Weight: 88 kg

DRUGS (4)
  1. FLOLAN [Suspect]
     Indication: PULMONARY HYPERTENSION
     Route: 042
     Dates: start: 20061201
  2. AMIODARONE HCL [Concomitant]
     Dosage: 200MG PER DAY
     Route: 048
  3. SILDENAFIL CITRATE [Concomitant]
     Dosage: 20MG THREE TIMES PER DAY
     Route: 048
  4. OXYBUTYNIN [Concomitant]
     Dosage: 5MG PER DAY
     Route: 048

REACTIONS (2)
  - CATHETER RELATED COMPLICATION [None]
  - PHARMACEUTICAL PRODUCT COMPLAINT [None]
